FAERS Safety Report 7176906-X (Version None)
Quarter: 2010Q4

REPORT INFORMATION
  Report Type: 
  Country: None (occurrence: None)
  Receive Date: 20101215
  Receipt Date: 20101215
  Transmission Date: 20110411
  Serious: Yes (Death, Life-Threatening, Hospitalization, Other)
  Sender: FDA-Public Use
  Company Number: None

PATIENT
  Age: 91 Year
  Sex: Female
  Weight: 54.4316 kg

DRUGS (1)
  1. BONIVA [Suspect]
     Indication: BONE DISORDER
     Dosage: BY INJECTION EVERY 3 MONTHS AT DRS OFFICE (DURATION: SEVERAL YEARS OR  MORE)

REACTIONS (10)
  - APHAGIA [None]
  - DECREASED APPETITE [None]
  - DEHYDRATION [None]
  - DELIRIUM [None]
  - FALL [None]
  - FEMUR FRACTURE [None]
  - PAIN [None]
  - SIALOADENITIS [None]
  - STARVATION [None]
  - UNEVALUABLE EVENT [None]
